FAERS Safety Report 21160707 (Version 1)
Quarter: 2022Q3

REPORT INFORMATION
  Report Type: Spontaneous
  Country: US (occurrence: None)
  Receive Date: 20220801
  Receipt Date: 20220801
  Transmission Date: 20221026
  Serious: No
  Sender: FDA-Public Use
  Company Number: None

PATIENT
  Age: 56 Year
  Sex: Male
  Weight: 94 kg

DRUGS (1)
  1. RITUXIMAB-PVVR [Suspect]
     Active Substance: RITUXIMAB-PVVR
     Indication: Follicular lymphoma
     Dosage: 800 MG OTHER IV
     Route: 042
     Dates: start: 20220629, end: 20220629

REACTIONS (7)
  - Respiratory depression [None]
  - Nausea [None]
  - Vomiting [None]
  - Dyspnoea [None]
  - Hypoxia [None]
  - Flushing [None]
  - Feeling hot [None]

NARRATIVE: CASE EVENT DATE: 20220629
